FAERS Safety Report 4736177-8 (Version None)
Quarter: 2005Q3

REPORT INFORMATION
  Report Type: 
  Country: None (occurrence: None)
  Receive Date: 20050806
  Receipt Date: 20050608
  Transmission Date: 20060218
  Serious: No
  Sender: FDA-Public Use
  Company Number: PHEH2005US06494

PATIENT
  Age: 78 Year
  Sex: Female

DRUGS (2)
  1. AREDIA [Suspect]
  2. ZOMETA [Suspect]
     Dosage: UNK, ONCE/SINGLE

REACTIONS (3)
  - ABSCESS [None]
  - INFECTION [None]
  - TOOTH EXTRACTION [None]
